FAERS Safety Report 6093930-9 (Version None)
Quarter: 2009Q1

REPORT INFORMATION
  Report Type: 
  Country: None (occurrence: None)
  Receive Date: 20090226
  Receipt Date: 20090220
  Transmission Date: 20090719
  Serious: Yes (Death)
  Sender: FDA-Public Use
  Company Number: A0763813A

PATIENT
  Age: 55 Year
  Sex: Male
  Weight: 72.7 kg

DRUGS (3)
  1. AVANDIA [Suspect]
     Route: 048
     Dates: start: 20060321, end: 20070104
  2. AVANDAMET [Suspect]
     Indication: DIABETES MELLITUS
     Route: 048
     Dates: start: 20051001, end: 20060321
  3. METFORMIN [Concomitant]

REACTIONS (4)
  - CORONARY ARTERY DISEASE [None]
  - HYPERTENSIVE HEART DISEASE [None]
  - MYOCARDIAL INFARCTION [None]
  - SUDDEN CARDIAC DEATH [None]
